FAERS Safety Report 7511906-9 (Version None)
Quarter: 2011Q2

REPORT INFORMATION
  Report Type: 
  Country: None (occurrence: None)
  Receive Date: 20110531
  Receipt Date: 20110526
  Transmission Date: 20111010
  Serious: Yes (Death)
  Sender: FDA-Public Use
  Company Number: CH-PFIZER INC-2011113764

PATIENT
  Age: 78 Year
  Sex: Female

DRUGS (12)
  1. TORSEMIDE [Suspect]
     Indication: RENAL FAILURE CHRONIC
     Dosage: 50 MG, 1X/DAY
     Route: 048
  2. MORPHINE SULFATE [Concomitant]
  3. BISOPROLOL FUMARATE [Concomitant]
  4. ATORVASTATIN CALCIUM [Interacting]
     Indication: HYPERLIPIDAEMIA
     Dosage: 40 MG, 1X/DAY
     Route: 048
  5. AMLODIPINE BESILATE [Suspect]
     Dosage: 5 MG, 1X/DAY
     Route: 048
  6. NOVALGIN [Suspect]
     Indication: PSYCHOGENIC PAIN DISORDER
     Dosage: 500 MG, 4X/DAY
     Route: 048
     Dates: end: 20090406
  7. ALDACTONE [Suspect]
     Indication: ESSENTIAL HYPERTENSION
     Dosage: 25 MG, 1X/DAY
     Route: 048
     Dates: start: 20080101, end: 20090406
  8. ACETAMINOPHEN [Concomitant]
  9. CARMELLOSE SODIUM [Concomitant]
  10. FRAGMIN [Concomitant]
     Dosage: 2500 IU, 1X/DAY
     Route: 058
  11. MARCOUMAR [Interacting]
     Indication: ATRIAL FIBRILLATION
     Dosage: 1 DF, AS NEEDED
     Route: 048
     Dates: start: 20070101, end: 20090403
  12. PREDNISONE [Suspect]
     Indication: OSTEOARTHRITIS
     Dosage: 10 MG, 1X/DAY
     Route: 048
     Dates: start: 20090101

REACTIONS (8)
  - RENAL FAILURE CHRONIC [None]
  - DYSPNOEA [None]
  - HAEMORRHAGIC ANAEMIA [None]
  - MELAENA [None]
  - CARDIAC FAILURE [None]
  - ANGINA PECTORIS [None]
  - DRUG INTERACTION [None]
  - INTERNATIONAL NORMALISED RATIO INCREASED [None]
